FAERS Safety Report 18948272 (Version 3)
Quarter: 2021Q1

REPORT INFORMATION
  Report Type: Spontaneous
  Country: PL (occurrence: PL)
  Receive Date: 20210227
  Receipt Date: 20210322
  Transmission Date: 20210420
  Serious: Yes (Hospitalization, Other)
  Sender: FDA-Public Use
  Company Number: PL-AMGEN-POLSP2021029336

PATIENT
  Age: 46 Year
  Sex: Male

DRUGS (3)
  1. LENALIDOMIDE [Concomitant]
     Active Substance: LENALIDOMIDE
     Indication: PLASMA CELL MYELOMA
     Dosage: UNK
     Dates: start: 2020
  2. KYPROLIS [Suspect]
     Active Substance: CARFILZOMIB
     Indication: PLASMA CELL MYELOMA
     Dosage: UNK
     Route: 065
     Dates: start: 2020
  3. DEXAMETHASONE. [Concomitant]
     Active Substance: DEXAMETHASONE
     Indication: PLASMA CELL MYELOMA
     Dosage: UNK
     Dates: start: 2020

REACTIONS (2)
  - Pneumonia [Unknown]
  - Humerus fracture [Unknown]

NARRATIVE: CASE EVENT DATE: 20210119
